FAERS Safety Report 6857540-5 (Version None)
Quarter: 2010Q3

REPORT INFORMATION
  Report Type: 
  Country: None (occurrence: None)
  Receive Date: 20100719
  Receipt Date: 20080127
  Transmission Date: 20110219
  Serious: Yes (Other)
  Sender: FDA-Public Use
  Company Number: US-PFIZER INC-2008008627

PATIENT
  Sex: Female
  Weight: 75 kg

DRUGS (3)
  1. CHAMPIX [Suspect]
     Indication: SMOKING CESSATION THERAPY
     Dates: start: 20080114
  2. VITAMINS [Concomitant]
  3. BUPROPION [Concomitant]

REACTIONS (1)
  - RASH MACULAR [None]
